FAERS Safety Report 9566194 (Version 2)
Quarter: 2015Q2

REPORT INFORMATION
  Report Type: Spontaneous
  Country: US (occurrence: US)
  Receive Date: 20130930
  Receipt Date: 20150409
  Transmission Date: 20150821
  Serious: Yes (Other)
  Sender: FDA-Public Use
  Company Number: US-ASTRAZENECA-2013SE64072

PATIENT
  Age: 66 Year
  Sex: Female
  Weight: 81.6 kg

DRUGS (16)
  1. CARVEDILOL. [Concomitant]
     Active Substance: CARVEDILOL
     Indication: BLOOD PRESSURE
  2. LANTUS [Concomitant]
     Active Substance: INSULIN GLARGINE
     Dosage: SHE IS UP TO SIX BOTTLES OF INSULIN PER DAY
  3. ASA [Suspect]
     Active Substance: ASPIRIN
     Route: 065
  4. GLIMEPIRIDE. [Concomitant]
     Active Substance: GLIMEPIRIDE
     Indication: DIABETES MELLITUS
  5. POT CL MICRO [Concomitant]
  6. BRILINTA [Suspect]
     Active Substance: TICAGRELOR
     Indication: STENT PLACEMENT
     Route: 048
     Dates: start: 201307
  7. QUINIPRIL [Concomitant]
     Indication: BLOOD PRESSURE
  8. LIVALO [Concomitant]
     Active Substance: PITAVASTATIN CALCIUM
     Indication: BLOOD CHOLESTEROL ABNORMAL
  9. JANUVIA [Concomitant]
     Active Substance: SITAGLIPTIN PHOSPHATE
     Indication: DIABETES MELLITUS
  10. VITAMIN D3 [Concomitant]
     Active Substance: CHOLECALCIFEROL
  11. CODEINE [Concomitant]
     Active Substance: CODEINE
  12. LEVOTHYROXINE [Concomitant]
     Active Substance: LEVOTHYROXINE
     Indication: THYROID DISORDER
  13. COQ10 [Concomitant]
     Active Substance: UBIDECARENONE
  14. HUMALOG [Concomitant]
     Active Substance: INSULIN LISPRO
     Dosage: SHE IS UP TO SIX BOTTLES OF INSULIN PER DAY
  15. FAMOTIDINE. [Concomitant]
     Active Substance: FAMOTIDINE
  16. BUMETANIDE. [Concomitant]
     Active Substance: BUMETANIDE

REACTIONS (6)
  - Thyroid disorder [Unknown]
  - Malaise [Unknown]
  - Intentional product misuse [Unknown]
  - Heat exhaustion [Recovered/Resolved]
  - General physical health deterioration [Unknown]
  - Dehydration [Recovered/Resolved]

NARRATIVE: CASE EVENT DATE: 201308
